FAERS Safety Report 25530189 (Version 1)
Quarter: 2025Q3

REPORT INFORMATION
  Report Type: Spontaneous
  Country: GB (occurrence: GB)
  Receive Date: 20250708
  Receipt Date: 20250708
  Transmission Date: 20251020
  Serious: Yes (Disabling)
  Sender: ELI LILLY AND COMPANY
  Company Number: None

PATIENT
  Age: 28 Year
  Sex: Female
  Weight: 95 kg

DRUGS (1)
  1. MOUNJARO [Suspect]
     Active Substance: TIRZEPATIDE
     Indication: Product used for unknown indication
     Route: 065
     Dates: start: 20250602

REACTIONS (4)
  - Headache [Recovering/Resolving]
  - Back pain [Recovered/Resolved with Sequelae]
  - Vomiting [Recovered/Resolved with Sequelae]
  - Diarrhoea [Recovered/Resolved with Sequelae]

NARRATIVE: CASE EVENT DATE: 20250611
